FAERS Safety Report 5195967-0 (Version None)
Quarter: 2007Q1

REPORT INFORMATION
  Report Type: 
  Country: None (occurrence: None)
  Receive Date: 20070102
  Receipt Date: 20061220
  Transmission Date: 20070707
  Serious: Yes (Hospitalization)
  Sender: FDA-Public Use
  Company Number: FRWYE898420DEC06

PATIENT
  Age: 60 Year
  Sex: Female
  Weight: 60 kg

DRUGS (4)
  1. ENBREL [Suspect]
     Indication: RHEUMATOID ARTHRITIS
     Route: 058
     Dates: start: 20040201, end: 20060101
  2. ENBREL [Suspect]
     Route: 058
     Dates: start: 20060501, end: 20061017
  3. FOSAMAX [Concomitant]
     Route: 048
     Dates: start: 20060501
  4. OROCAL VITAMIN D [Concomitant]
     Dosage: 2 TABLETS TOTLA DAILY
     Route: 048
     Dates: start: 20060501, end: 20061025

REACTIONS (3)
  - ARTHRITIS BACTERIAL [None]
  - LISTERIOSIS [None]
  - RHEUMATOID ARTHRITIS [None]
